FAERS Safety Report 13071696 (Version 1)
Quarter: 2016Q4

REPORT INFORMATION
  Report Type: Spontaneous
  Country: US (occurrence: US)
  Receive Date: 20161228
  Receipt Date: 20161228
  Transmission Date: 20170207
  Serious: No
  Sender: FDA-Public Use
  Company Number: None

PATIENT
  Age: 37 Year
  Sex: Female

DRUGS (1)
  1. HUMIRA [Suspect]
     Active Substance: ADALIMUMAB
     Indication: PSORIASIS
     Dosage: 40MG EVERY 14 DAYS SUBCUTANEOUSLY
     Route: 058
     Dates: start: 20160301

REACTIONS (7)
  - Psoriasis [None]
  - Inappropriate schedule of drug administration [None]
  - Middle ear effusion [None]
  - Influenza [None]
  - Dizziness [None]
  - Vertigo [None]
  - Nausea [None]

NARRATIVE: CASE EVENT DATE: 20161220
